FAERS Safety Report 9064065 (Version 3)
Quarter: 2013Q1

REPORT INFORMATION
  Report Type: Spontaneous
  Country: ES (occurrence: ES)
  Receive Date: 20130213
  Receipt Date: 20130306
  Transmission Date: 20140127
  Serious: Yes (Hospitalization)
  Sender: FDA-Public Use
  Company Number: ES-MERCK-1302ESP004007

PATIENT
  Age: 60 Year
  Sex: Female

DRUGS (11)
  1. VICTRELIS [Suspect]
     Indication: CHRONIC HEPATITIS C
     Dosage: 800 MG, Q8H
     Route: 048
     Dates: start: 20121130, end: 20130110
  2. VICTRELIS [Suspect]
     Indication: CRYOGLOBULINAEMIA
  3. PEGINTRON [Suspect]
     Indication: CHRONIC HEPATITIS C
     Dosage: UNK UNK, QW
     Route: 058
     Dates: start: 20121102, end: 20130110
  4. PEGINTRON [Suspect]
     Indication: CRYOGLOBULINAEMIA
  5. REBETOL [Suspect]
     Indication: CHRONIC HEPATITIS C
     Dosage: UNK
     Route: 048
     Dates: start: 20121102, end: 20130110
  6. ESCITALOPRAM [Concomitant]
     Indication: DEPRESSION
     Dosage: UNK
     Route: 048
     Dates: start: 20121102
  7. EPOETIN [Concomitant]
     Indication: ANAEMIA
     Dosage: UNK
     Route: 058
     Dates: start: 20130102, end: 20130110
  8. LORAZEPAM [Concomitant]
     Indication: INSOMNIA
     Dosage: UNK
     Route: 048
     Dates: start: 20121102, end: 20130110
  9. OMEPRAZOLE [Concomitant]
     Dosage: UNK
     Route: 048
     Dates: start: 20121130, end: 20130110
  10. VALPROIC ACID [Concomitant]
     Indication: TENSION HEADACHE
     Dosage: 100 MG, QD
     Route: 048
     Dates: start: 20121130
  11. ACETAMINOPHEN [Concomitant]
     Indication: INFLUENZA
     Dosage: 1 G, TID
     Route: 048
     Dates: start: 20121102, end: 20130110

REACTIONS (4)
  - Acute respiratory failure [Recovered/Resolved]
  - Pneumonia [Recovered/Resolved]
  - Neutropenia [Recovered/Resolved]
  - Phobia [Unknown]
